FAERS Safety Report 16619207 (Version 1)
Quarter: 2019Q3

REPORT INFORMATION
  Report Type: Spontaneous
  Country: US (occurrence: US)
  Receive Date: 20190723
  Receipt Date: 20190723
  Transmission Date: 20191004
  Serious: Yes (Hospitalization, Other)
  Sender: FDA-Public Use
  Company Number: None

PATIENT
  Age: 60 Year
  Sex: Female

DRUGS (3)
  1. AFINITOR [Suspect]
     Active Substance: EVEROLIMUS
     Indication: BREAST CANCER FEMALE
     Route: 048
     Dates: start: 20190527, end: 20190712
  2. DEXAMETHASONE. [Concomitant]
     Active Substance: DEXAMETHASONE
  3. EXEMESTANE. [Concomitant]
     Active Substance: EXEMESTANE

REACTIONS (4)
  - Urticaria [None]
  - Burning sensation [None]
  - Rash generalised [None]
  - Tongue discomfort [None]

NARRATIVE: CASE EVENT DATE: 20190705
